FAERS Safety Report 25578196 (Version 5)
Quarter: 2025Q3

REPORT INFORMATION
  Report Type: Spontaneous
  Country: US (occurrence: US)
  Receive Date: 20250718
  Receipt Date: 20250825
  Transmission Date: 20251021
  Serious: Yes (Other)
  Sender: JOHNSON AND JOHNSON
  Company Number: US-JNJFOC-20250706809

PATIENT
  Age: 84 Year
  Sex: Male

DRUGS (2)
  1. STELARA [Suspect]
     Active Substance: USTEKINUMAB
     Indication: Psoriatic arthropathy
     Dosage: 87 DAYS AS PER DOCTOR ORDERS
     Route: 058
     Dates: start: 20250625
  2. STELARA [Suspect]
     Active Substance: USTEKINUMAB
     Indication: Diabetes mellitus
     Dosage: STRENGTH: 45.00 MG / 0.50 ML
     Route: 058

REACTIONS (5)
  - Non-small cell lung cancer stage IV [Unknown]
  - Psoriatic arthropathy [Unknown]
  - Product dose omission issue [Unknown]
  - Device defective [Unknown]
  - Off label use [Unknown]

NARRATIVE: CASE EVENT DATE: 20250625
